FAERS Safety Report 7009818-2 (Version None)
Quarter: 2010Q3

REPORT INFORMATION
  Report Type: 
  Country: None (occurrence: None)
  Receive Date: 20100923
  Receipt Date: 20100914
  Transmission Date: 20110219
  Serious: Yes (Hospitalization)
  Sender: FDA-Public Use
  Company Number: US-JNJCH-2010021398

PATIENT
  Age: 28 Year
  Sex: Female

DRUGS (2)
  1. DIPHENHYDRAMINE HCL [Suspect]
     Indication: RASH
     Dosage: TEXT:50 MG
     Route: 048
  2. ORAL CONTRACEPTIVE NOS [Concomitant]
     Indication: CONTRACEPTION
     Dosage: TEXT:UNKNOWN
     Route: 048

REACTIONS (2)
  - DYSTONIA [None]
  - OFF LABEL USE [None]
